FAERS Safety Report 13947704 (Version 5)
Quarter: 2018Q2

REPORT INFORMATION
  Report Type: Report from Study
  Country: IL (occurrence: IL)
  Receive Date: 20170908
  Receipt Date: 20180508
  Transmission Date: 20180711
  Serious: Yes (Life-Threatening, Hospitalization, Other)
  Sender: FDA-Public Use
  Company Number: IL-ROCHE-1987480

PATIENT
  Age: 73 Year
  Sex: Female
  Weight: 68.6 kg

DRUGS (40)
  1. RITUXIMAB. [Suspect]
     Active Substance: RITUXIMAB
     Indication: DIFFUSE LARGE B-CELL LYMPHOMA
     Dosage: MOST RECENT DOSE PRIOR TO SYNCOPE WAS ON 22/MAY/2017.?MOST RECENT DOSE PRIOR TO FIRST OCCURRENCE OF
     Route: 042
     Dates: start: 20170430
  2. RITUXIMAB. [Suspect]
     Active Substance: RITUXIMAB
     Route: 042
     Dates: start: 20170806, end: 20170806
  3. DOXORUBICINE [Suspect]
     Active Substance: DOXORUBICIN
     Indication: DIFFUSE LARGE B-CELL LYMPHOMA
     Dosage: MOST RECENT DOSE PRIOR TO SYNCOPE WAS ON 22/MAY/2017.?MOST RECENT DOSE PRIOR TO FIRST OCCURRENCE OF
     Route: 042
     Dates: start: 20170430
  4. LOSEC [Concomitant]
     Active Substance: OMEPRAZOLE
     Route: 065
  5. OMEPRADEX [Concomitant]
     Active Substance: OMEPRAZOLE
  6. RITUXIMAB. [Suspect]
     Active Substance: RITUXIMAB
     Route: 042
     Dates: start: 20170612, end: 20170612
  7. RITUXIMAB. [Suspect]
     Active Substance: RITUXIMAB
     Route: 042
     Dates: start: 20170713, end: 20170713
  8. CYCLOPHOSPHAMIDE. [Suspect]
     Active Substance: CYCLOPHOSPHAMIDE
     Route: 042
     Dates: start: 20170522, end: 20170522
  9. VINCRISTINE [Suspect]
     Active Substance: VINCRISTINE
     Dosage: LAST DOSE PRIOR TO SAE (NEUTROPENIA) ON 28/AUG/2017
     Route: 042
     Dates: start: 20170806
  10. KCL [Concomitant]
     Active Substance: POTASSIUM CHLORIDE
     Dosage: 20 MCG/100 ML SALINE
     Route: 042
  11. CYCLOPHOSPHAMIDE. [Suspect]
     Active Substance: CYCLOPHOSPHAMIDE
     Dosage: LAST DOSE PRIOR TO SAE (NEUTROPENIA) ON 28/AUG/2017
     Route: 042
     Dates: start: 20170612, end: 20170612
  12. VINCRISTINE [Suspect]
     Active Substance: VINCRISTINE
     Route: 042
     Dates: start: 20170522, end: 20170522
  13. PREDNISONE. [Suspect]
     Active Substance: PREDNISONE
     Route: 048
     Dates: start: 20170522, end: 20170522
  14. FLAGYL [Concomitant]
     Active Substance: METRONIDAZOLE\METRONIDAZOLE HYDROCHLORIDE
     Route: 065
  15. NORVASC [Concomitant]
     Active Substance: AMLODIPINE BESYLATE
     Route: 065
  16. DOXORUBICINE [Suspect]
     Active Substance: DOXORUBICIN
     Dosage: LAST DOSE PRIOR SAE (NEUTROPENIA) ON 28/AUG/2017
     Route: 042
     Dates: start: 20170806, end: 20170806
  17. VINCRISTINE [Suspect]
     Active Substance: VINCRISTINE
     Indication: DIFFUSE LARGE B-CELL LYMPHOMA
     Dosage: MOST RECENT DOSE PRIOR TO SYNCOPE WAS ON 22/MAY/2017.?MOST RECENT DOSE PRIOR TO FIRST OCCURRENCE OF
     Route: 042
     Dates: start: 20170430
  18. LOSARTAN POTASSIUM AND HYDROCHLOROTHIAZIDE [Concomitant]
     Active Substance: HYDROCHLOROTHIAZIDE\LOSARTAN POTASSIUM
     Route: 065
  19. TRIFLUCAN [Concomitant]
     Active Substance: FLUCONAZOLE
     Route: 042
     Dates: start: 20170813
  20. CLEXAN [Concomitant]
     Active Substance: ENOXAPARIN SODIUM
  21. BLINDED CC-5013 [Suspect]
     Active Substance: LENALIDOMIDE
     Route: 048
     Dates: start: 20170612, end: 20170625
  22. CYCLOPHOSPHAMIDE. [Suspect]
     Active Substance: CYCLOPHOSPHAMIDE
     Indication: DIFFUSE LARGE B-CELL LYMPHOMA
     Dosage: MOST RECENT DOSE PRIOR TO SYNCOPE WAS ON 22/MAY/2017.?MOST RECENT DOSE PRIOR TO FIRST OCCURRENCE OF
     Route: 042
     Dates: start: 20170430
  23. ENALAPRIL [Concomitant]
     Active Substance: ENALAPRIL
  24. RITUXIMAB. [Suspect]
     Active Substance: RITUXIMAB
     Route: 042
     Dates: start: 20170828, end: 20170828
  25. DOXORUBICINE [Suspect]
     Active Substance: DOXORUBICIN
     Route: 042
     Dates: start: 20170522, end: 20170522
  26. PREDNISONE. [Suspect]
     Active Substance: PREDNISONE
     Indication: DIFFUSE LARGE B-CELL LYMPHOMA
     Dosage: MOST RECENT DOSE PRIOR TO SYNCOPE WAS ON 22/MAY/2017.?MOST RECENT DOSE PRIOR TO FIRST OCCURRENCE OF
     Route: 048
     Dates: start: 20170430
  27. VINCRISTINE [Suspect]
     Active Substance: VINCRISTINE
     Route: 042
     Dates: start: 20170612, end: 20170612
  28. VINCRISTINE [Suspect]
     Active Substance: VINCRISTINE
     Route: 042
     Dates: start: 20170713, end: 20170713
  29. PREDNISONE. [Suspect]
     Active Substance: PREDNISONE
     Route: 048
     Dates: start: 20170612, end: 20170612
  30. LAMIVUDINE. [Concomitant]
     Active Substance: LAMIVUDINE
     Route: 065
  31. BONDORMIN [Concomitant]
     Active Substance: BROTIZOLAM
  32. RITUXIMAB. [Suspect]
     Active Substance: RITUXIMAB
     Route: 042
     Dates: start: 20170522, end: 20170522
  33. BLINDED CC-5013 [Suspect]
     Active Substance: LENALIDOMIDE
     Indication: DIFFUSE LARGE B-CELL LYMPHOMA
     Dosage: MOST RECENT DOSE PRIOR TO SYNCOPE WAS ON 22/MAY/2017.?MOST RECENT DOSE PRIOR TO FIRST OCCURRENCE OF
     Route: 048
     Dates: start: 20170430
  34. BLINDED CC-5013 [Suspect]
     Active Substance: LENALIDOMIDE
     Route: 048
     Dates: start: 20170522, end: 20170529
  35. BLINDED CC-5013 [Suspect]
     Active Substance: LENALIDOMIDE
     Route: 048
     Dates: start: 20170713, end: 20170715
  36. BLINDED CC-5013 [Suspect]
     Active Substance: LENALIDOMIDE
     Route: 048
     Dates: start: 20170828, end: 20170828
  37. DOXORUBICINE [Suspect]
     Active Substance: DOXORUBICIN
     Route: 042
     Dates: start: 20170612, end: 20170612
  38. DOXORUBICINE [Suspect]
     Active Substance: DOXORUBICIN
     Route: 042
     Dates: start: 20170713, end: 20170713
  39. PREDNISONE. [Suspect]
     Active Substance: PREDNISONE
     Route: 048
     Dates: start: 20170716
  40. PREDNISONE. [Suspect]
     Active Substance: PREDNISONE
     Dosage: RECEIVED AGAIN ON 10/AUG/2017?LAST DOSE PRIOR TO SAE (NEUTROPENIA) ON 28/AUG/2017
     Route: 048
     Dates: start: 20170806

REACTIONS (11)
  - Presyncope [Recovered/Resolved]
  - Pulmonary embolism [Recovered/Resolved]
  - Vomiting [Unknown]
  - Orthostatic hypotension [Recovered/Resolved]
  - Febrile neutropenia [Recovered/Resolved]
  - Diarrhoea [Unknown]
  - Hypoxia [Recovered/Resolved]
  - Neutropenia [Recovered/Resolved]
  - Addison^s disease [Unknown]
  - Presyncope [Recovered/Resolved]
  - Syncope [Recovered/Resolved]

NARRATIVE: CASE EVENT DATE: 20170529
